FAERS Safety Report 9897286 (Version 1)
Quarter: 2014Q1

REPORT INFORMATION
  Report Type: Spontaneous
  Country: AT (occurrence: AT)
  Receive Date: 20140214
  Receipt Date: 20140214
  Transmission Date: 20141002
  Serious: Yes (Hospitalization, Other)
  Sender: FDA-Public Use
  Company Number: AT-009507513-1402AUT004703

PATIENT
  Sex: Female

DRUGS (3)
  1. VELMETIA [Suspect]
     Indication: TYPE 2 DIABETES MELLITUS
     Dosage: TOTAL DAILY DOSE: 100/2000 MG, FREQUENCY: 1/0/1
     Route: 048
     Dates: start: 2011
  2. VELMETIA [Suspect]
     Dosage: TOTAL DAILY DOSE: 100/2000 MG, FREQUENCY: 1/0/1
     Route: 048
     Dates: start: 20140209
  3. INSULIN [Concomitant]
     Indication: TYPE 2 DIABETES MELLITUS
     Dosage: 14 IU, DAILY AT 22:30

REACTIONS (3)
  - Surgery [Unknown]
  - Surgical procedure repeated [Unknown]
  - Melanocytic naevus [Unknown]
